FAERS Safety Report 17880705 (Version 2)
Quarter: 2020Q2

REPORT INFORMATION
  Report Type: Spontaneous
  Country: US (occurrence: US)
  Receive Date: 20200610
  Receipt Date: 20200615
  Transmission Date: 20200714
  Serious: Yes (Hospitalization)
  Sender: FDA-Public Use
  Company Number: US-PFIZER INC-2020223778

PATIENT
  Age: 46 Year
  Sex: Female
  Weight: 63.5 kg

DRUGS (3)
  1. HYDROCORTISONE. [Suspect]
     Active Substance: HYDROCORTISONE
     Indication: BLOOD CORTISOL
     Dosage: 2.5 MG, 5 TIMES A DAY
  2. HYDROCORTISONE. [Suspect]
     Active Substance: HYDROCORTISONE
     Dosage: 5 MG, 3X/DAY(20MG CUT INTO 5MG)
     Route: 048
     Dates: start: 20200521
  3. HYDROCORTISONE. [Suspect]
     Active Substance: HYDROCORTISONE
     Dosage: 10MG IN MORNING ,5MG IN NOON, 5MG AT 3PM AND 2.5MG AT BEDTIME

REACTIONS (10)
  - Vomiting [Unknown]
  - Organ failure [Unknown]
  - Diarrhoea [Unknown]
  - Intentional underdose [Unknown]
  - Dysphemia [Unknown]
  - Dizziness [Unknown]
  - Blood pressure decreased [Unknown]
  - Asthenia [Unknown]
  - Adrenocortical insufficiency acute [Recovered/Resolved]
  - Headache [Unknown]

NARRATIVE: CASE EVENT DATE: 202005
